FAERS Safety Report 7980114-X (Version None)
Quarter: 2011Q4

REPORT INFORMATION
  Report Type: 
  Country: None (occurrence: None)
  Receive Date: 20111212
  Receipt Date: 20111203
  Transmission Date: 20120403
  Serious: Yes (Other)
  Sender: FDA-Public Use
  Company Number: 2011-SE-0013

PATIENT
  Age: 25 Year
  Sex: Female

DRUGS (1)
  1. NITROGLYCERIN [Suspect]
     Indication: PRODUCT USED FOR UNKNOWN INDICATION

REACTIONS (6)
  - HEADACHE [None]
  - SWELLING FACE [None]
  - VISUAL ACUITY REDUCED [None]
  - HYPERSENSITIVITY [None]
  - FACIAL SPASM [None]
  - BLEPHAROSPASM [None]
